FAERS Safety Report 19060471 (Version 1)
Quarter: 2021Q1

REPORT INFORMATION
  Report Type: Spontaneous
  Country: CA (occurrence: CA)
  Receive Date: 20210326
  Receipt Date: 20210326
  Transmission Date: 20210420
  Serious: Yes (Death, Other)
  Sender: FDA-Public Use
  Company Number: CA-AUROBINDO-AUR-APL-2021-011581

PATIENT
  Age: 72 Year
  Sex: Female
  Weight: 36 kg

DRUGS (3)
  1. TADALAFIL TABLET [Suspect]
     Active Substance: TADALAFIL
     Indication: PULMONARY ARTERIAL HYPERTENSION
     Dosage: UNK
     Route: 065
  2. VOLIBRIS [Suspect]
     Active Substance: AMBRISENTAN
     Indication: PRODUCT USED FOR UNKNOWN INDICATION
     Dosage: UNKNOWN
     Route: 065
  3. TADALAFIL TABLET [Suspect]
     Active Substance: TADALAFIL
     Indication: CONNECTIVE TISSUE DISORDER
     Dosage: 40 MILLIGRAM

REACTIONS (1)
  - Death [Fatal]
